FAERS Safety Report 7587490-0 (Version None)
Quarter: 2011Q3

REPORT INFORMATION
  Report Type: 
  Country: None (occurrence: None)
  Receive Date: 20110704
  Receipt Date: 20110620
  Transmission Date: 20111222
  Serious: Yes (Hospitalization)
  Sender: FDA-Public Use
  Company Number: GB-RANBAXY-2011RR-45699

PATIENT
  Age: 2 Year
  Sex: Male

DRUGS (3)
  1. IBUPROFEN [Suspect]
     Indication: UROSEPSIS
  2. TRIMETHOPRIM [Concomitant]
     Indication: UROSEPSIS
  3. ACETAMINOPHEN [Concomitant]
     Indication: UROSEPSIS

REACTIONS (4)
  - RENAL FAILURE [None]
  - URETERIC OBSTRUCTION [None]
  - RENAL PAPILLARY NECROSIS [None]
  - TUBULOINTERSTITIAL NEPHRITIS [None]
